FAERS Safety Report 7501256-9 (Version None)
Quarter: 2011Q2

REPORT INFORMATION
  Report Type: 
  Country: None (occurrence: None)
  Receive Date: 20110524
  Receipt Date: 20110513
  Transmission Date: 20111010
  Serious: Yes (Disabling, Other)
  Sender: FDA-Public Use
  Company Number: US-ELI_LILLY_AND_COMPANY-US201105004770

PATIENT

DRUGS (1)
  1. HUMALOG [Suspect]
     Indication: DIABETES MELLITUS

REACTIONS (4)
  - WHEELCHAIR USER [None]
  - INCORRECT DOSE ADMINISTERED [None]
  - HYPOACUSIS [None]
  - LIMB DEFORMITY [None]
